FAERS Safety Report 6496364-8 (Version None)
Quarter: 2009Q4

REPORT INFORMATION
  Report Type: 
  Country: None (occurrence: None)
  Receive Date: 20091214
  Receipt Date: 20091204
  Transmission Date: 20100525
  Serious: No
  Sender: FDA-Public Use
  Company Number: US-ROXANE LABORATORIES, INC.-2009-RO-01258RO

PATIENT
  Sex: Male

DRUGS (2)
  1. FLUTICASONE [Suspect]
     Indication: SEASONAL ALLERGY
     Route: 045
     Dates: start: 20090301, end: 20090828
  2. FLUTICASONE [Suspect]
     Indication: CHRONIC SINUSITIS

REACTIONS (7)
  - BLOOD PRESSURE INCREASED [None]
  - CSF PROTEIN INCREASED [None]
  - HEADACHE [None]
  - INTRACRANIAL PRESSURE INCREASED [None]
  - NAUSEA [None]
  - PAIN [None]
  - PYREXIA [None]
